FAERS Safety Report 26151548 (Version 1)
Quarter: 2025Q4

REPORT INFORMATION
  Report Type: Spontaneous
  Country: US (occurrence: US)
  Receive Date: 20251212
  Receipt Date: 20251212
  Transmission Date: 20260117
  Serious: No
  Sender: LIQUIDIA TECHNOLOGIES
  Company Number: US-LIQUIDIA TECHNOLOGIES, INC.-LIQ-2025-000020

PATIENT

DRUGS (17)
  1. YUTREPIA [Suspect]
     Active Substance: TREPROSTINIL SODIUM
     Indication: Pulmonary arterial hypertension
     Dosage: 106 MICROGRAM, QID (INHALE 2 BREATHS PER CAPSULE)
     Route: 055
     Dates: start: 202506
  2. YUTREPIA [Suspect]
     Active Substance: TREPROSTINIL SODIUM
     Indication: Pulmonary arterial hypertension
     Dosage: 185.5 MICROGRAM, QID (79.5 MCG AND 106 MCG) (INHALE 2 BREATHS)))
     Route: 055
     Dates: start: 20250811
  3. YUTREPIA [Suspect]
     Active Substance: TREPROSTINIL SODIUM
     Dosage: 185.5 MICROGRAM, QID(79.5MCG+106MCG) (INHALE 2 BREATHS PER CAPSULE)
     Route: 055
     Dates: start: 2025
  4. YUTREPIA [Suspect]
     Active Substance: TREPROSTINIL SODIUM
     Dosage: 212 MICROGRAM, QID (106+106) (INHALE 2 BREATHS PER CAPSULE)
     Route: 055
     Dates: start: 2025
  5. SILDENAFIL CITRATE [Concomitant]
     Active Substance: SILDENAFIL CITRATE
     Indication: Product used for unknown indication
     Dosage: UNK
  6. ALBUTEROL SULFATE [Concomitant]
     Active Substance: ALBUTEROL SULFATE
     Indication: Product used for unknown indication
  7. MELATONIN [Concomitant]
     Active Substance: MELATONIN
     Indication: Product used for unknown indication
  8. TYLENOL [Concomitant]
     Active Substance: ACETAMINOPHEN
     Indication: Product used for unknown indication
  9. CLOPIDOGREL [Concomitant]
     Active Substance: CLOPIDOGREL BISULFATE
     Indication: Product used for unknown indication
  10. VITAMIN C [Concomitant]
     Active Substance: ASCORBIC ACID
     Indication: Product used for unknown indication
  11. TRELEGY ELLIPTA [Concomitant]
     Active Substance: FLUTICASONE FUROATE\UMECLIDINIUM BROMIDE\VILANTEROL TRIFENATATE
     Indication: Product used for unknown indication
  12. EZETIMIBE [Concomitant]
     Active Substance: EZETIMIBE
     Indication: Product used for unknown indication
  13. OMEGA 369 [BORAGO OFFICINALIS OIL;FISH OIL;OLEA EUROPAEA OIL] [Concomitant]
     Indication: Product used for unknown indication
  14. ROSUVASTATIN [Concomitant]
     Active Substance: ROSUVASTATIN
     Indication: Product used for unknown indication
  15. LISINOPRIL [Concomitant]
     Active Substance: LISINOPRIL
     Indication: Product used for unknown indication
  16. OXYGEN [Concomitant]
     Active Substance: OXYGEN
     Indication: Product used for unknown indication
  17. CALTRATE [Concomitant]
     Active Substance: CALCIUM CARBONATE
     Indication: Product used for unknown indication

REACTIONS (4)
  - Drug intolerance [Unknown]
  - Product physical issue [Unknown]
  - Product dose omission issue [Unknown]
  - Headache [Recovered/Resolved]

NARRATIVE: CASE EVENT DATE: 20250601
